FAERS Safety Report 19824077 (Version 2)
Quarter: 2021Q4

REPORT INFORMATION
  Report Type: Report from Study
  Country: DE (occurrence: DE)
  Receive Date: 20210913
  Receipt Date: 20211011
  Transmission Date: 20220303
  Serious: Yes (Hospitalization, Other)
  Sender: FDA-Public Use
  Company Number: DE-PFM-2021-07948

PATIENT
  Age: 58 Year
  Sex: Female
  Weight: 117 kg

DRUGS (11)
  1. ENCORAFENIB [Suspect]
     Active Substance: ENCORAFENIB
     Indication: Malignant melanoma
     Dosage: 450 MG, 1/DAY
     Route: 048
     Dates: start: 20210223, end: 20210608
  2. BINIMETINIB [Suspect]
     Active Substance: BINIMETINIB
     Indication: Malignant melanoma
     Dosage: 45 MG, 2/DAY
     Route: 048
     Dates: start: 20210223, end: 20210608
  3. RAMIPRIL [Concomitant]
     Active Substance: RAMIPRIL
     Dosage: UNK
  4. HYDROCHLOROTHIAZIDE [Concomitant]
     Active Substance: HYDROCHLOROTHIAZIDE
     Dosage: UNK
  5. NALOXONE HYDROCHLORIDE\TILIDINE HYDROCHLORIDE [Concomitant]
     Active Substance: NALOXONE HYDROCHLORIDE\TILIDINE HYDROCHLORIDE
     Indication: Herpes virus infection
     Dosage: UNK
     Route: 065
     Dates: start: 20210502
  6. METAMIZOLE [Concomitant]
     Active Substance: METAMIZOLE
     Indication: Herpes virus infection
     Dosage: UNK
     Route: 065
     Dates: start: 20210502
  7. PREGABALIN [Concomitant]
     Active Substance: PREGABALIN
     Indication: Herpes virus infection
     Dosage: UNK
     Route: 065
     Dates: start: 20210502
  8. DEXAMETHASONE [Concomitant]
     Active Substance: DEXAMETHASONE
     Indication: Dehydration
     Dosage: UNK
     Route: 065
     Dates: start: 20210618
  9. SODIUM CHLORIDE [Concomitant]
     Active Substance: SODIUM CHLORIDE
     Indication: Dehydration
     Dosage: 0.9 %
     Route: 065
  10. COMIRNATY [Concomitant]
     Active Substance: TOZINAMERAN
     Indication: COVID-19 immunisation
     Dosage: DOSE 1, SINGLE
     Dates: start: 20210416
  11. COMIRNATY [Concomitant]
     Active Substance: TOZINAMERAN
     Dosage: DOSE 2, SINGLE
     Dates: start: 20210528

REACTIONS (3)
  - Ophthalmic herpes zoster [Recovered/Resolved]
  - Dehydration [Recovered/Resolved]
  - Lymphoedema [Recovered/Resolved]

NARRATIVE: CASE EVENT DATE: 20210223
